FAERS Safety Report 10139758 (Version 2)
Quarter: 2014Q4

REPORT INFORMATION
  Report Type: Spontaneous
  Country: US (occurrence: US)
  Receive Date: 20140429
  Receipt Date: 20141121
  Transmission Date: 20150528
  Serious: Yes (Other)
  Sender: FDA-Public Use
  Company Number: US-BAYER-2014-061093

PATIENT
  Age: 25 Year
  Sex: Female

DRUGS (1)
  1. MIRENA [Suspect]
     Active Substance: LEVONORGESTREL
     Indication: CONTRACEPTION
     Dosage: 20 MCG/24HR, CONT
     Route: 015
     Dates: start: 20090113, end: 20120323

REACTIONS (13)
  - Post procedural discomfort [None]
  - Device dislocation [None]
  - Injury [None]
  - Device issue [None]
  - Drug ineffective [None]
  - Pain [None]
  - Post abortion haemorrhage [None]
  - Ectopic pregnancy with contraceptive device [None]
  - Vaginal haemorrhage [None]
  - Polymenorrhoea [None]
  - Abortion of ectopic pregnancy [None]
  - Ovarian cyst [None]
  - Device dislocation [None]

NARRATIVE: CASE EVENT DATE: 20090127
